FAERS Safety Report 4924257-3 (Version None)
Quarter: 2006Q1

REPORT INFORMATION
  Report Type: 
  Country: None (occurrence: None)
  Receive Date: 20060221
  Receipt Date: 20060206
  Transmission Date: 20060701
  Serious: Yes (Other)
  Sender: FDA-Public Use
  Company Number: 2006018953

PATIENT
  Sex: Female
  Weight: 72.5755 kg

DRUGS (9)
  1. LIPITOR [Suspect]
     Indication: ILL-DEFINED DISORDER
     Dosage: 10 MG (10 MG, 1 IN 1 D), ORAL
     Route: 048
  2. AVAPRO [Concomitant]
  3. PROTONIX [Concomitant]
  4. TOPROL-XL [Concomitant]
  5. PLAVIX [Concomitant]
  6. DIURETICS [Concomitant]
  7. URINARY ANTISPASMODICS [Concomitant]
  8. VITAMINS [Concomitant]
  9. ACETYLSALICYLIC ACID SRT [Concomitant]

REACTIONS (3)
  - AMNESIA [None]
  - BLADDER CANCER [None]
  - BLOOD CHOLESTEROL ABNORMAL [None]
